FAERS Safety Report 9240801 (Version 1)
Quarter: 2013Q1

REPORT INFORMATION
  Report Type: Spontaneous
  Country: US (occurrence: None)
  Receive Date: 20121120
  Receipt Date: 20121120
  Transmission Date: 20140127
  Serious: No
  Sender: FDA-Public Use
  Company Number: 1000037622

PATIENT
  Age: 35 Year
  Sex: Female

DRUGS (7)
  1. VIIBRYD [Suspect]
     Indication: DEPRESSION
     Dosage: 10 MG (10 MG, 1 IN 1 D, PO)
     Route: 048
     Dates: start: 20120719, end: 20120725
  2. METFORMIN (METFORMIN) [Concomitant]
  3. HIGH BLOOD PRESSURE MEDICATION [Concomitant]
  4. ABILIFY (ARIPIPRAZOLE) [Concomitant]
  5. GLIPIZIDE (GLIPIZIDE) [Concomitant]
  6. XANAX (ALPRAZOLAM) [Concomitant]
  7. DOXEPIN (DOXEPIN) (DOXEPIN) [Concomitant]

REACTIONS (1)
  - Nausea [None]
